FAERS Safety Report 22279449 (Version 2)
Quarter: 2023Q2

REPORT INFORMATION
  Report Type: Spontaneous
  Country: CN (occurrence: CN)
  Receive Date: 20230503
  Receipt Date: 20230509
  Transmission Date: 20230722
  Serious: Yes (Hospitalization, Other)
  Sender: FDA-Public Use
  Company Number: CN-PFIZER INC-PV202300078910

PATIENT

DRUGS (1)
  1. CIBINQO [Suspect]
     Active Substance: ABROCITINIB
     Indication: Dermatosis
     Dosage: 1 DF, 1X/DAY
     Route: 048
     Dates: start: 20230416

REACTIONS (3)
  - Thrombosis [Unknown]
  - Cerebral infarction [Unknown]
  - Cerebral thrombosis [Recovering/Resolving]

NARRATIVE: CASE EVENT DATE: 20230424
